FAERS Safety Report 4563968-9 (Version None)
Quarter: 2005Q1

REPORT INFORMATION
  Report Type: 
  Country: None (occurrence: None)
  Receive Date: 20050128
  Receipt Date: 20050117
  Transmission Date: 20050727
  Serious: Yes (Hospitalization)
  Sender: FDA-Public Use
  Company Number: JP-JNJFOC-20040701676

PATIENT
  Age: 82 Year
  Sex: Male

DRUGS (14)
  1. OFLOXACIN [Suspect]
     Indication: DRUG USE FOR UNKNOWN INDICATION
     Route: 042
  2. LASILIX [Suspect]
     Indication: DRUG USE FOR UNKNOWN INDICATION
     Route: 049
  3. ATROVENT [Suspect]
     Indication: DRUG USE FOR UNKNOWN INDICATION
  4. CALCIPARINE [Suspect]
     Route: 058
  5. CALCIPARINE [Suspect]
     Indication: DRUG USE FOR UNKNOWN INDICATION
     Route: 058
  6. MONO TILDIEM [Suspect]
     Indication: DRUG USE FOR UNKNOWN INDICATION
     Route: 049
  7. PARACETAMOL [Suspect]
     Indication: DRUG USE FOR UNKNOWN INDICATION
     Route: 049
  8. CORDARONE [Concomitant]
  9. LIPANTHYL [Concomitant]
  10. ANAFRANIL [Concomitant]
  11. IMOVANE [Concomitant]
  12. ZAMUDOL [Concomitant]
  13. BRICANYL [Concomitant]
  14. PREVISCAN [Concomitant]

REACTIONS (2)
  - LYMPHOMA [None]
  - THROMBOCYTOPENIA [None]
